FAERS Safety Report 7985992-6 (Version None)
Quarter: 2011Q4

REPORT INFORMATION
  Report Type: 
  Country: None (occurrence: None)
  Receive Date: 20111007
  Receipt Date: 20110823
  Transmission Date: 20120403
  Serious: No
  Sender: FDA-Public Use
  Company Number: 2011HGS-002445

PATIENT
  Age: 58 Year
  Sex: Female
  Weight: 53.5244 kg

DRUGS (13)
  1. ZANAFLEX (TIZANIDINE HYDROCHLORIDE) (TIZANIDINE HYDROCHLORIDE) [Concomitant]
  2. BENLYSTA [Suspect]
     Indication: SYSTEMIC LUPUS ERYTHEMATOSUS
     Dosage: 10 MG/KG, 1 IN 14 D, INTRAVENOUS DRIP
     Route: 041
     Dates: start: 20110706, end: 20110706
  3. FENTANYL [Concomitant]
  4. ETODOLAC (ETODOLAC) (ETODOLAC) [Concomitant]
  5. HYDROXYCHLOROQUINE SULFATE [Concomitant]
  6. CYMBALTA (ANTIDEPRESSANTS) (DULOXETINE) [Concomitant]
  7. DICYCLOMINE (DICYCLOVERINE) (DICYCLOVERINE) [Concomitant]
  8. PROPRANOLOL [Concomitant]
  9. LEVETIRACETAM [Concomitant]
  10. LORAZEPAM [Concomitant]
  11. OMEPRAZOLE DELAYED RELEASE (OMEPRAZOLE) (OMEPRAZOLE) [Concomitant]
  12. GABAPENTIN [Concomitant]
  13. OXYCODONE HCL [Concomitant]

REACTIONS (4)
  - GASTROINTESTINAL PAIN [None]
  - DIARRHOEA [None]
  - DEPRESSION [None]
  - ABNORMAL DREAMS [None]
